FAERS Safety Report 8833065 (Version 2)
Quarter: 2012Q4

REPORT INFORMATION
  Report Type: 
  Country: GR (occurrence: GR)
  Receive Date: 20121010
  Receipt Date: 20121128
  Transmission Date: 20130627
  Serious: Yes (Hospitalization)
  Sender: FDA-Public Use
  Company Number: GR-SHIRE-SPV1-2012-00849

PATIENT
  Age: 64 Year
  Sex: Female

DRUGS (2)
  1. FOSRENOL [Suspect]
     Indication: HYPERPHOSPHATAEMIA
     Dosage: 750 mg, 3x/day:tid
     Route: 065
     Dates: start: 20111205, end: 20120516
  2. VITAMINS                           /00067501/ [Concomitant]
     Indication: PRODUCT USED FOR UNKNOWN INDICATION
     Dosage: UNK UNK, Unknown
     Route: 065
     Dates: end: 2012

REACTIONS (2)
  - Pyrexia [Unknown]
  - Hepatic enzyme increased [Recovered/Resolved]
